FAERS Safety Report 7579734-6 (Version None)
Quarter: 2011Q2

REPORT INFORMATION
  Report Type: 
  Country: None (occurrence: None)
  Receive Date: 20110629
  Receipt Date: 20110615
  Transmission Date: 20111010
  Serious: Yes (Life-Threatening, Hospitalization)
  Sender: FDA-Public Use
  Company Number: CH-JNJFOC-20110607530

PATIENT
  Age: 72 Year
  Sex: Female

DRUGS (9)
  1. METHOTREXATE [Concomitant]
     Indication: RHEUMATOID ARTHRITIS
     Route: 058
     Dates: start: 20050101
  2. PREDNISONE [Concomitant]
     Indication: RHEUMATOID ARTHRITIS
     Route: 048
  3. ATENOLOL [Concomitant]
     Indication: HYPERTENSION
  4. REMERON [Concomitant]
     Indication: DEPRESSION
     Route: 048
  5. REMICADE [Suspect]
     Indication: RHEUMATOID ARTHRITIS
     Route: 042
     Dates: start: 20100909, end: 20100909
  6. REMICADE [Suspect]
     Route: 042
     Dates: start: 20060101
  7. OMEPRAZOLE [Concomitant]
     Dosage: SINCE YEARS
  8. COZAAR [Concomitant]
     Indication: HYPERTENSION
     Dosage: SINCE YEARS
  9. LEXOTANIL [Concomitant]
     Indication: DEPRESSION
     Dosage: WHEN NEEDED

REACTIONS (1)
  - PULMONARY EMBOLISM [None]
